FAERS Safety Report 10342304 (Version 1)
Quarter: 2014Q3

REPORT INFORMATION
  Report Type: Spontaneous
  Country: US (occurrence: US)
  Receive Date: 20140725
  Receipt Date: 20140725
  Transmission Date: 20150326
  Serious: Yes (Other)
  Sender: FDA-Public Use
  Company Number: US-SA-2014SA094907

PATIENT
  Age: 24 Year
  Sex: Female

DRUGS (4)
  1. METHOTREXATE [Suspect]
     Active Substance: METHOTREXATE
     Indication: ACUTE UNDIFFERENTIATED LEUKAEMIA
     Route: 042
  2. CYTARABINE. [Concomitant]
     Active Substance: CYTARABINE
     Indication: ACUTE LEUKAEMIA
     Dosage: DOSE:1 GRAM(S)/SQUARE METER
  3. CLOFARABINE [Suspect]
     Active Substance: CLOFARABINE
     Indication: ACUTE LEUKAEMIA
     Route: 065
  4. METHOTREXATE [Suspect]
     Active Substance: METHOTREXATE
     Indication: ACUTE UNDIFFERENTIATED LEUKAEMIA
     Route: 037

REACTIONS (1)
  - Encephalopathy [Recovered/Resolved]
